FAERS Safety Report 8257044-1 (Version None)
Quarter: 2012Q2

REPORT INFORMATION
  Report Type: 
  Country: None (occurrence: None)
  Receive Date: 20120403
  Receipt Date: 20120328
  Transmission Date: 20120825
  Serious: Yes (Other)
  Sender: FDA-Public Use
  Company Number: SE-GLAXOSMITHKLINE-B0778504A

PATIENT
  Sex: Male

DRUGS (1)
  1. ACITRETIN [Suspect]
     Indication: PRODUCT USED FOR UNKNOWN INDICATION
     Route: 065
     Dates: end: 20100415

REACTIONS (2)
  - CEREBRAL ARTERY THROMBOSIS [None]
  - HYPERCHOLESTEROLAEMIA [None]
